FAERS Safety Report 7260622-X (Version None)
Quarter: 2011Q1

REPORT INFORMATION
  Report Type: 
  Country: None (occurrence: None)
  Receive Date: 20110130
  Receipt Date: 20101108
  Transmission Date: 20110831
  Serious: No
  Sender: FDA-Public Use
  Company Number: US-ABBOTT-10P-163-0684737-00

PATIENT
  Sex: Male
  Weight: 4.76 kg

DRUGS (4)
  1. MORPHINE [Concomitant]
     Indication: PAIN
  2. MORPHINE [Concomitant]
     Indication: PAIN
  3. HUMIRA [Suspect]
     Indication: RHEUMATOID ARTHRITIS
     Dates: start: 20100401, end: 20101001
  4. HUMIRA [Suspect]
     Indication: CROHN'S DISEASE
     Dates: start: 20090301, end: 20100301

REACTIONS (4)
  - ABDOMINAL PAIN UPPER [None]
  - DIARRHOEA [None]
  - CROHN'S DISEASE [None]
  - GASTROINTESTINAL PAIN [None]
